FAERS Safety Report 6484441-7 (Version None)
Quarter: 2009Q4

REPORT INFORMATION
  Report Type: 
  Country: None (occurrence: None)
  Receive Date: 20091209
  Receipt Date: 20091127
  Transmission Date: 20100525
  Serious: Yes (Other)
  Sender: FDA-Public Use
  Company Number: PHHY2009BR52684

PATIENT
  Sex: Male

DRUGS (1)
  1. FORASEQ [Suspect]
     Dosage: UNK

REACTIONS (4)
  - APHASIA [None]
  - DYSPNOEA [None]
  - FEELING ABNORMAL [None]
  - TERMINAL STATE [None]
